FAERS Safety Report 12072266 (Version 1)
Quarter: 2016Q1

REPORT INFORMATION
  Report Type: Spontaneous
  Country: US (occurrence: US)
  Receive Date: 20160212
  Receipt Date: 20160212
  Transmission Date: 20160526
  Serious: Yes (Life-Threatening, Hospitalization, Other)
  Sender: FDA-Public Use
  Company Number: PHEH2016US002951

PATIENT
  Age: 68 Year
  Sex: Female
  Weight: 83.46 kg

DRUGS (6)
  1. LETROZOLE. [Suspect]
     Active Substance: LETROZOLE
     Indication: BREAST CANCER METASTATIC
     Dosage: 2.5 MG, QD (2.5 MG CAPSULE, ONCE A DAY FOR 21 DAYS, THEN 2.5 MG ONCE A DAY ALONE FOR NEXT 7 DAYS)
     Route: 065
     Dates: start: 2009
  2. CRANBERRY//VACCINIUM MACROCARPON [Concomitant]
     Active Substance: CRANBERRY
     Indication: URINARY TRACT DISORDER
     Dosage: 500 MG, QOD (ONCE EVERY OTHER DAY) TAKING FOR OVER A YEAR
     Route: 065
  3. AFINITOR [Suspect]
     Active Substance: EVEROLIMUS
     Indication: BREAST CANCER METASTATIC
     Route: 065
  4. GABAPENTIN. [Concomitant]
     Active Substance: GABAPENTIN
     Indication: NEURALGIA
     Dosage: 2 DF, QID (600 MG, 2 TABLETS, 4 TIMES A DAY AS NEEDED EVERY 6 HOURS)
     Route: 065
  5. LORAZEPAM. [Concomitant]
     Active Substance: LORAZEPAM
     Indication: PRODUCT USED FOR UNKNOWN INDICATION
     Dosage: UNK, Q8H (1 TO2 TABLETS EVERY 8 HOURS AS NEEDED)
     Route: 065
  6. PALBOCICLIB [Suspect]
     Active Substance: PALBOCICLIB
     Indication: BREAST CANCER METASTATIC
     Dosage: 125 MG, QD (ONCE A DAY) FOR 21 DAYS AND THEN OFF 7 DAYS)
     Route: 065
     Dates: start: 201511

REACTIONS (12)
  - Hypophagia [Recovering/Resolving]
  - Pulmonary fibrosis [Unknown]
  - Abdominal pain lower [Recovering/Resolving]
  - Pyrexia [Unknown]
  - Haemoglobin decreased [Unknown]
  - Pneumonitis [Recovering/Resolving]
  - Hyperhidrosis [Recovering/Resolving]
  - Dysuria [Unknown]
  - Urinary tract infection [Recovered/Resolved]
  - Bronchospasm [Unknown]
  - Dyspnoea [Unknown]
  - Product colour issue [Unknown]

NARRATIVE: CASE EVENT DATE: 20160106
